FAERS Safety Report 11014150 (Version 2)
Quarter: 2015Q2

REPORT INFORMATION
  Report Type: Spontaneous
  Country: US (occurrence: US)
  Receive Date: 20150412
  Receipt Date: 20150525
  Transmission Date: 20150821
  Serious: No
  Sender: FDA-Public Use
  Company Number: US-JNJFOC-20150108386

PATIENT
  Age: 62 Year
  Sex: Male

DRUGS (1)
  1. OLYSIO [Suspect]
     Active Substance: SIMEPREVIR
     Indication: HEPATITIS C
     Route: 048
     Dates: start: 20141105

REACTIONS (4)
  - Depression [Unknown]
  - Nausea [Unknown]
  - Abdominal pain upper [Unknown]
  - Agitation [Unknown]

NARRATIVE: CASE EVENT DATE: 20141129
